FAERS Safety Report 4392507-0 (Version None)
Quarter: 2004Q3

REPORT INFORMATION
  Report Type: 
  Country: None (occurrence: None)
  Receive Date: 20040702
  Receipt Date: 20040225
  Transmission Date: 20050211
  Serious: Yes (Other)
  Sender: FDA-Public Use
  Company Number: 2004UW03405

PATIENT
  Age: 53 Year
  Sex: Female
  Weight: 60.3284 kg

DRUGS (2)
  1. CRESTOR [Suspect]
     Indication: HYPERCHOLESTEROLAEMIA
     Dosage: 10 MG QD PO
     Route: 048
     Dates: start: 20040204, end: 20040217
  2. PREMARIN [Concomitant]

REACTIONS (3)
  - ABDOMINAL PAIN [None]
  - LIBIDO DECREASED [None]
  - MYALGIA [None]
